FAERS Safety Report 25652799 (Version 2)
Quarter: 2025Q3

REPORT INFORMATION
  Report Type: Report from Study
  Country: US (occurrence: US)
  Receive Date: 20250807
  Receipt Date: 20250922
  Transmission Date: 20251021
  Serious: No
  Sender: SUNOVION
  Company Number: US-SUMITOMO PHARMA SWITZERLAND GMBH-2025SPA001087

PATIENT
  Age: 66 Year
  Sex: Male

DRUGS (1)
  1. ORGOVYX [Suspect]
     Active Substance: RELUGOLIX
     Indication: Prostate cancer
     Dosage: 120 MG, QD
     Route: 048
     Dates: start: 20250128

REACTIONS (7)
  - Vitamin B12 deficiency [Unknown]
  - Blood pressure abnormal [Unknown]
  - Myalgia [Unknown]
  - Hot flush [Unknown]
  - Weight increased [Unknown]
  - Flushing [Unknown]
  - Incorrect dose administered [Recovered/Resolved]
